FAERS Safety Report 9059586 (Version 1)
Quarter: 2013Q1

REPORT INFORMATION
  Report Type: Spontaneous
  Country: US (occurrence: None)
  Receive Date: 20130206
  Receipt Date: 20130206
  Transmission Date: 20140127
  Serious: Yes (Other)
  Sender: FDA-Public Use
  Company Number: None

PATIENT
  Age: 36 Year
  Sex: Female
  Weight: 60.33 kg

DRUGS (1)
  1. VIIBRYD 20MG UNKNOWN [Suspect]
     Indication: DEPRESSION
     Dates: start: 20120321, end: 20130110

REACTIONS (3)
  - Syncope [None]
  - Extremity contracture [None]
  - Hypertension [None]
